FAERS Safety Report 8172952 (Version 3)
Quarter: 2012Q4

REPORT INFORMATION
  Report Type: Spontaneous
  Country: US (occurrence: US)
  Receive Date: 20111007
  Receipt Date: 20121218
  Transmission Date: 20130627
  Serious: Yes (Other)
  Sender: FDA-Public Use
  Company Number: PHEH2011US05786

PATIENT
  Age: 58 Year
  Sex: Female
  Weight: 86.2 kg

DRUGS (10)
  1. ZOMETA (ZOLEDRONATE) SOLUTION FOR INJECTION [Suspect]
     Indication: METASTASES TO BONE
     Dosage: 4 mg, QMO
     Route: 042
     Dates: start: 20100209, end: 20110721
  2. ZOMETA (ZOLEDRONATE) SOLUTION FOR INJECTION [Suspect]
     Indication: BREAST CANCER
     Dosage: 4 mg, QMO
     Route: 042
     Dates: start: 20100209, end: 20110721
  3. CHEMOTHERAPEUTICS (NO INGTREDIENTS/SUBSTANCES) [Concomitant]
  4. COUMADINE (WARFARIN SODIUIM) [Concomitant]
     Indication: DEEP VEIN THROMBOSIS
     Dosage: UNK
     Dates: start: 201002
  5. SYNTHROID (LEVOTHYROXINE SODIUM) [Concomitant]
  6. AMBIEN (ZOLPIDEM TARTRATE) [Concomitant]
  7. CELEXA (CITALOPRAM HYDROBROMIDE) [Concomitant]
     Indication: DEPRESSION
     Dosage: UNK
     Dates: start: 201002
  8. CALCIUM WITH VITAMIN D (CALCIUM PHOSPHATE, CALCIUM SODIUM LACTATE, EGOCALCIFEROL) [Concomitant]
     Indication: DEPRESSION
     Dosage: UNK
     Dates: start: 201002
  9. GEMZAR (GEMCITABINE HYDROCHLORIDE) [Concomitant]
     Route: 042
  10. CARBOPLATIN (CARBOPLATIN) [Concomitant]
     Indication: BREAST CANCER
     Dosage: UNK
     Dates: start: 201102

REACTIONS (7)
  - Osteonecrosis of jaw [Not Recovered/Not Resolved]
  - Exposed bone in jaw [Not Recovered/Not Resolved]
  - Erythema [Not Recovered/Not Resolved]
  - Swelling [Not Recovered/Not Resolved]
  - Purulent discharge [Not Recovered/Not Resolved]
  - Aphagia [Not Recovered/Not Resolved]
  - Soft tissue infection [Not Recovered/Not Resolved]
